FAERS Safety Report 7819460-9 (Version None)
Quarter: 2011Q4

REPORT INFORMATION
  Report Type: 
  Country: None (occurrence: None)
  Receive Date: 20111018
  Receipt Date: 20110808
  Transmission Date: 20120403
  Serious: No
  Sender: FDA-Public Use
  Company Number: US-ASTRAZENECA-2011SE48041

PATIENT
  Age: 79 Year
  Sex: Female

DRUGS (3)
  1. SYMBICORT [Suspect]
     Route: 055
  2. LEVAQUIN [Concomitant]
  3. INHALERS (THREE) [Concomitant]

REACTIONS (3)
  - LUNG INFECTION [None]
  - LUNG DISORDER [None]
  - MALAISE [None]
